FAERS Safety Report 22226410 (Version 1)
Quarter: 2023Q2

REPORT INFORMATION
  Report Type: Spontaneous
  Country: JP (occurrence: JP)
  Receive Date: 20230419
  Receipt Date: 20230419
  Transmission Date: 20230722
  Serious: Yes (Other)
  Sender: FDA-Public Use
  Company Number: JP-BRISTOL-MYERS SQUIBB COMPANY-2023-007604

PATIENT
  Age: 5 Year
  Sex: Male

DRUGS (1)
  1. VIDAZA [Suspect]
     Active Substance: AZACITIDINE
     Indication: Product used for unknown indication
     Dates: start: 20221118

REACTIONS (2)
  - Myelosuppression [Unknown]
  - Blast cell count increased [Unknown]

NARRATIVE: CASE EVENT DATE: 20220101
